FAERS Safety Report 4924051-3 (Version None)
Quarter: 2006Q1

REPORT INFORMATION
  Report Type: 
  Country: None (occurrence: None)
  Receive Date: 20060227
  Receipt Date: 20051027
  Transmission Date: 20060701
  Serious: No
  Sender: FDA-Public Use
  Company Number: US-GLAXOSMITHKLINE-A0579934A

PATIENT
  Age: 24 Year
  Sex: Female
  Weight: 69 kg

DRUGS (1)
  1. WELLBUTRIN XL [Suspect]
     Indication: DEPRESSION
     Dosage: 300MG PER DAY
     Route: 048
     Dates: start: 20051006, end: 20051026

REACTIONS (8)
  - ARTHRALGIA [None]
  - DIFFICULTY IN WALKING [None]
  - MALAISE [None]
  - OEDEMA [None]
  - PRURITUS [None]
  - PYREXIA [None]
  - RASH [None]
  - SERUM SICKNESS [None]
